FAERS Safety Report 19456646 (Version 1)
Quarter: 2021Q2

REPORT INFORMATION
  Report Type: Spontaneous
  Country: JP (occurrence: JP)
  Receive Date: 20210624
  Receipt Date: 20210624
  Transmission Date: 20210717
  Serious: Yes (Other)
  Sender: FDA-Public Use
  Company Number: NVSJ2021JP009238

PATIENT
  Age: 63 Year
  Sex: Female

DRUGS (1)
  1. ILARIS [Suspect]
     Active Substance: CANAKINUMAB
     Indication: FAMILIAL MEDITERRANEAN FEVER
     Dosage: UNK
     Route: 058

REACTIONS (3)
  - Schnitzler^s syndrome [Unknown]
  - Concomitant disease aggravated [Unknown]
  - Blood immunoglobulin M increased [Unknown]
